FAERS Safety Report 23182467 (Version 1)
Quarter: 2023Q4

REPORT INFORMATION
  Report Type: Spontaneous
  Country: US (occurrence: None)
  Receive Date: 20231114
  Receipt Date: 20231114
  Transmission Date: 20240110
  Serious: No
  Sender: FDA-Public Use
  Company Number: None

PATIENT
  Age: 73 Year
  Sex: Female
  Weight: 85.73 kg

DRUGS (1)
  1. XELJANZ XR [Suspect]
     Active Substance: TOFACITINIB CITRATE
     Indication: Psoriatic arthropathy
     Dosage: OTHER QUANTITY : TAKE 1 TABLET;?FREQUENCY : DAILY;?
     Route: 048
     Dates: start: 202310

REACTIONS (8)
  - Urinary tract infection [None]
  - Drug ineffective [None]
  - Pruritus [None]
  - Upper limb fracture [None]
  - Depression [None]
  - Joint dislocation [None]
  - Psoriasis [None]
  - Therapy interrupted [None]
